FAERS Safety Report 4412899-3 (Version None)
Quarter: 2004Q3

REPORT INFORMATION
  Report Type: 
  Country: None (occurrence: None)
  Receive Date: 20040730
  Receipt Date: 20040730
  Transmission Date: 20050211
  Serious: No
  Sender: FDA-Public Use
  Company Number: None

PATIENT
  Sex: Male
  Weight: 82.1011 kg

DRUGS (1)
  1. LUPRON DEPOT [Suspect]
     Indication: PROSTATE CANCER
     Dosage: 30 MG/ EVERY 4 MONTH / IM
     Route: 030
     Dates: start: 20040607

REACTIONS (2)
  - INJECTION SITE INFECTION [None]
  - INJECTION SITE REACTION [None]
